FAERS Safety Report 4475067-5 (Version None)
Quarter: 2004Q4

REPORT INFORMATION
  Report Type: 
  Country: None (occurrence: None)
  Receive Date: 20041015
  Receipt Date: 20040930
  Transmission Date: 20050328
  Serious: Yes (Hospitalization)
  Sender: FDA-Public Use
  Company Number: DE-JNJFOC-20040908801

PATIENT
  Age: 30 Year
  Sex: Male

DRUGS (1)
  1. REMICADE [Suspect]
     Indication: CROHN'S DISEASE
     Route: 042

REACTIONS (5)
  - ARTHROPOD BITE [None]
  - BORRELIA BURGDORFERI SEROLOGY POSITIVE [None]
  - RASH MACULAR [None]
  - SKIN DEPIGMENTATION [None]
  - SKIN LESION [None]
